FAERS Safety Report 25073418 (Version 1)
Quarter: 2025Q1

REPORT INFORMATION
  Report Type: Spontaneous
  Country: US (occurrence: US)
  Receive Date: 20250313
  Receipt Date: 20250313
  Transmission Date: 20250409
  Serious: No
  Sender: BRISTOL-MYERS SQUIBB COMPANY
  Company Number: US-BRISTOL-MYERS SQUIBB COMPANY-2025-036518

PATIENT
  Age: 69 Year
  Sex: Male
  Weight: 101.1 kg

DRUGS (1)
  1. ORENCIA [Suspect]
     Active Substance: ABATACEPT
     Indication: Rheumatoid arthritis
     Dosage: DOSE : 750MG;     FREQ : ONCE EVERY (4) WEEKS
     Route: 058
     Dates: start: 20240930

REACTIONS (2)
  - Rash [Unknown]
  - Blood pressure increased [Unknown]
